FAERS Safety Report 9443617 (Version 2)
Quarter: 2014Q1

REPORT INFORMATION
  Report Type: Spontaneous
  Country: US (occurrence: US)
  Receive Date: 20130806
  Receipt Date: 20140204
  Transmission Date: 20141002
  Serious: Yes (Other)
  Sender: FDA-Public Use
  Company Number: US-UCBSA-093544

PATIENT
  Age: 24 Year
  Sex: Female
  Weight: 58.9 kg

DRUGS (3)
  1. KEPPRA XR [Suspect]
     Indication: EPILEPSY
     Dosage: 3000MG ,4 -750MG TABLETS EVERY DAY
     Route: 048
     Dates: start: 200907
  2. KEPPRA XR [Suspect]
     Indication: EPILEPSY
     Dates: start: 2009
  3. DEPAKOTE [Concomitant]
     Dosage: UNKNOWN DOSE

REACTIONS (3)
  - Placental disorder [Recovered/Resolved]
  - Pregnancy [Recovered/Resolved]
  - Breast feeding [Recovered/Resolved]
